FAERS Safety Report 8365207-X (Version None)
Quarter: 2012Q2

REPORT INFORMATION
  Report Type: 
  Country: None (occurrence: None)
  Receive Date: 20120515
  Receipt Date: 20120502
  Transmission Date: 20120825
  Serious: No
  Sender: FDA-Public Use
  Company Number: TPA2012A01511

PATIENT
  Age: 67 Year
  Sex: Female

DRUGS (5)
  1. COLCHICINE [Concomitant]
  2. APROVEL (IRBESARTAN) [Concomitant]
  3. CALCITRIOL [Concomitant]
  4. KAYEXALATE [Concomitant]
  5. ADENURIC (FEBUXOSTAT) [Suspect]
     Indication: GOUT
     Dosage: ORAL
     Route: 048
     Dates: start: 20110201, end: 20110519

REACTIONS (1)
  - CYTOLYTIC HEPATITIS [None]
